FAERS Safety Report 25330924 (Version 1)
Quarter: 2025Q2

REPORT INFORMATION
  Report Type: Spontaneous
  Country: DE (occurrence: DE)
  Receive Date: 20250519
  Receipt Date: 20250519
  Transmission Date: 20250716
  Serious: Yes (Other)
  Sender: BAYER HEALTHCARE PHARMACEUTICALS INC.
  Company Number: DE-BAYER-2025A064025

PATIENT
  Sex: Female

DRUGS (6)
  1. BETAFERON [Suspect]
     Active Substance: INTERFERON BETA-1B
     Indication: Multiple sclerosis
  2. AUBAGIO [Concomitant]
     Active Substance: TERIFLUNOMIDE
  3. KESIMPTA [Concomitant]
     Active Substance: OFATUMUMAB
     Dates: start: 20250423
  4. KESIMPTA [Concomitant]
     Active Substance: OFATUMUMAB
  5. KESIMPTA [Concomitant]
     Active Substance: OFATUMUMAB
     Dates: start: 20250507
  6. ASTAXANTHIN [Concomitant]
     Active Substance: ASTAXANTHIN

REACTIONS (2)
  - Multiple sclerosis relapse [Not Recovered/Not Resolved]
  - Injection site pain [Not Recovered/Not Resolved]

NARRATIVE: CASE EVENT DATE: 20250102
